FAERS Safety Report 4269418-4 (Version None)
Quarter: 2004Q1

REPORT INFORMATION
  Report Type: 
  Country: None (occurrence: None)
  Receive Date: 20040109
  Receipt Date: 20040106
  Transmission Date: 20041129
  Serious: Yes (Other)
  Sender: FDA-Public Use
  Company Number: 2003-11-2012

PATIENT
  Age: 56 Year
  Sex: Male
  Weight: 82 kg

DRUGS (7)
  1. INTRON A [Suspect]
     Indication: HEPATITIS C
     Dosage: 3 MU TIW SUBCUTANEOUS
     Route: 058
     Dates: start: 20030925, end: 20031028
  2. NITRENDIPINE [Concomitant]
  3. CLONIDINE HCL [Concomitant]
  4. CALCIUM CARBONATE [Concomitant]
  5. ALFACALCIDOL [Concomitant]
  6. MULTI-VITAMINS [Concomitant]
  7. EPOGEN [Concomitant]

REACTIONS (6)
  - ABASIA [None]
  - PAIN [None]
  - PETECHIAE [None]
  - SKIN ULCER [None]
  - THROMBOPHLEBITIS [None]
  - WOUND [None]
